FAERS Safety Report 5053534-3 (Version None)
Quarter: 2006Q3

REPORT INFORMATION
  Report Type: 
  Country: None (occurrence: None)
  Receive Date: 20060712
  Receipt Date: 20060621
  Transmission Date: 20061208
  Serious: Yes (Hospitalization)
  Sender: FDA-Public Use
  Company Number: IE200606004719

PATIENT
  Age: 30 Year
  Sex: Male

DRUGS (2)
  1. STRATTERA [Suspect]
     Indication: LEARNING DISABILITY
     Dosage: SEE IMAGE
     Dates: start: 20060101
  2. SULFADINE (SULFADIMIDINE) [Concomitant]

REACTIONS (3)
  - FALL [None]
  - HYPOTENSION [None]
  - WEIGHT DECREASED [None]
